FAERS Safety Report 8048635-1 (Version None)
Quarter: 2012Q1

REPORT INFORMATION
  Report Type: 
  Country: None (occurrence: None)
  Receive Date: 20120117
  Receipt Date: 20120109
  Transmission Date: 20120608
  Serious: Yes (Other)
  Sender: FDA-Public Use
  Company Number: US-BAYER-2012-000871

PATIENT
  Age: 63 Year
  Sex: Female

DRUGS (2)
  1. PHENYLEPHRINE HCL [Suspect]
     Indication: NASOPHARYNGITIS
     Dosage: 1 DF, QD
     Route: 048
  2. VICODIN [Concomitant]
     Indication: MIGRAINE

REACTIONS (4)
  - GASTRIC HAEMORRHAGE [None]
  - ABDOMINAL PAIN UPPER [None]
  - HAEMORRHAGE [None]
  - HAEMATOCHEZIA [None]
